FAERS Safety Report 18193478 (Version 2)
Quarter: 2020Q4

REPORT INFORMATION
  Report Type: Spontaneous
  Country: DE (occurrence: DE)
  Receive Date: 20200825
  Receipt Date: 20201008
  Transmission Date: 20210113
  Serious: Yes (Hospitalization)
  Sender: FDA-Public Use
  Company Number: DE-BAXTER-2020BAX016755

PATIENT
  Sex: Female

DRUGS (7)
  1. SODIUM [Suspect]
     Active Substance: SODIUM
     Indication: PARENTERAL NUTRITION
     Route: 065
  2. PHOSPHATE [Suspect]
     Active Substance: UNSPECIFIED INGREDIENT
     Indication: PARENTERAL NUTRITION
     Route: 065
  3. MAGNESIUM [Suspect]
     Active Substance: MAGNESIUM
     Indication: PARENTERAL NUTRITION
     Route: 065
  4. CALCIUM [Suspect]
     Active Substance: CALCIUM
     Indication: PARENTERAL NUTRITION
     Route: 065
  5. GLUCOSE 50  BAXTER [Suspect]
     Active Substance: DEXTROSE
     Indication: PARENTERAL NUTRITION
     Route: 065
  6. POTASSIUM [Suspect]
     Active Substance: POTASSIUM
     Indication: PARENTERAL NUTRITION
     Route: 065
  7. CLINOLEIC 20 % [Suspect]
     Active Substance: OLIVE OIL\SOYBEAN OIL
     Indication: PARENTERAL NUTRITION
     Route: 065

REACTIONS (3)
  - Back pain [Unknown]
  - Acinetobacter sepsis [Unknown]
  - Headache [Unknown]
